FAERS Safety Report 18937739 (Version 2)
Quarter: 2021Q1

REPORT INFORMATION
  Report Type: Report from Study
  Country: CA (occurrence: CA)
  Receive Date: 20210225
  Receipt Date: 20210311
  Transmission Date: 20210420
  Serious: Yes (Hospitalization, Other)
  Sender: FDA-Public Use
  Company Number: CA-GILEAD-2021-0518254

PATIENT
  Age: 29 Year
  Sex: Female
  Weight: 48 kg

DRUGS (21)
  1. OMEPRAZOLE. [Concomitant]
     Active Substance: OMEPRAZOLE
  2. SALBUTAMOL [Concomitant]
     Active Substance: ALBUTEROL
  3. OXYGEN. [Concomitant]
     Active Substance: OXYGEN
  4. FERROUS GLUCONATE [Concomitant]
     Active Substance: FERROUS GLUCONATE
  5. PULMOZYME [Concomitant]
     Active Substance: DORNASE ALFA
  6. BISOPROLOL [Concomitant]
     Active Substance: BISOPROLOL
  7. HYPERTONIC SALINE SOLUTION [Concomitant]
     Active Substance: SODIUM CHLORIDE
  8. WARFARIN [Concomitant]
     Active Substance: WARFARIN
  9. TOBRAMYCIN. [Concomitant]
     Active Substance: TOBRAMYCIN
  10. TRESIBA [Concomitant]
     Active Substance: INSULIN DEGLUDEC
  11. CHOLECALCIFEROL [Concomitant]
     Active Substance: CHOLECALCIFEROL
  12. COTAZYM ECS [AMYLASE;LIPASE;PROTEASE NOS] [Concomitant]
  13. ESCITALOPRAM [Concomitant]
     Active Substance: ESCITALOPRAM OXALATE
  14. HYDROMORPHONE [Concomitant]
     Active Substance: HYDROMORPHONE
  15. SYMBICORT [Concomitant]
     Active Substance: BUDESONIDE\FORMOTEROL FUMARATE DIHYDRATE
  16. CENTRUM FORTE [Concomitant]
  17. RISEDRONATE [Concomitant]
     Active Substance: RISEDRONATE SODIUM
  18. SPIRIVA RESPIMAT [Concomitant]
     Active Substance: TIOTROPIUM BROMIDE
  19. TOBI [Concomitant]
     Active Substance: TOBRAMYCIN
  20. AZTREONAM LYSINE [Suspect]
     Active Substance: AZTREONAM LYSINE
     Indication: CYSTIC FIBROSIS
     Dosage: 75 MG, TID
     Route: 055
     Dates: start: 202101
  21. HUMALOG [Concomitant]
     Active Substance: INSULIN LISPRO

REACTIONS (2)
  - Lung disorder [Not Recovered/Not Resolved]
  - Cystic fibrosis [Unknown]

NARRATIVE: CASE EVENT DATE: 20210218
